FAERS Safety Report 18690326 (Version 4)
Quarter: 2021Q2

REPORT INFORMATION
  Report Type: Spontaneous
  Country: US (occurrence: US)
  Receive Date: 20210101
  Receipt Date: 20210409
  Transmission Date: 20210717
  Serious: No
  Sender: FDA-Public Use
  Company Number: US-SA-2020SA377083

PATIENT
  Age: 56 Year
  Sex: Female

DRUGS (1)
  1. DUPIXENT [Suspect]
     Active Substance: DUPILUMAB
     Indication: DERMATITIS ATOPIC
     Dosage: 300 MG, QOW
     Route: 058
     Dates: start: 202002

REACTIONS (4)
  - Injection site haemorrhage [Unknown]
  - Needle issue [Unknown]
  - Device difficult to use [Unknown]
  - Injection site bruising [Unknown]

NARRATIVE: CASE EVENT DATE: 2020
